FAERS Safety Report 5032838-4 (Version None)
Quarter: 2006Q2

REPORT INFORMATION
  Report Type: 
  Country: None (occurrence: None)
  Receive Date: 20060622
  Receipt Date: 20060523
  Transmission Date: 20061013
  Serious: Yes (Hospitalization, Other)
  Sender: FDA-Public Use
  Company Number: PHEH2006US06825

PATIENT
  Age: 67 Year
  Sex: Female

DRUGS (8)
  1. DEXAMETHASONE TAB [Concomitant]
     Dosage: 10 MG, PRIOR TO CHEMO ONLY
  2. AMLODIPINE BESYLATE [Concomitant]
     Dosage: 5 MG, UNK
  3. AMARYL [Concomitant]
     Dosage: 4 MG, UNK
  4. COREG [Concomitant]
     Dosage: 6.25 MG, UNK
  5. PRINIVIL [Concomitant]
     Dosage: 20 MG, UNK
  6. PIOGLITAZONE HYDROCHLORIDE [Concomitant]
     Indication: DIABETES MELLITUS
     Dosage: 45 MG, QD PO
     Route: 048
  7. TAXOL [Concomitant]
     Dosage: 160 MG, IVPB Q WEEK
     Dates: end: 20050418
  8. ZOMETA [Suspect]
     Indication: METASTASES TO BONE
     Dosage: 4 MG MONTHLY
     Route: 042
     Dates: start: 20031001, end: 20060410

REACTIONS (10)
  - DENTAL EXAMINATION ABNORMAL [None]
  - ERYTHEMA [None]
  - LOCAL SWELLING [None]
  - LYMPH NODE PAIN [None]
  - LYMPHADENOPATHY [None]
  - OSTEOMYELITIS [None]
  - OSTEONECROSIS [None]
  - PAIN [None]
  - PAIN IN JAW [None]
  - TOOTH EXTRACTION [None]
